FAERS Safety Report 10409782 (Version 3)
Quarter: 2014Q4

REPORT INFORMATION
  Report Type: Report from Study
  Country: UY (occurrence: AR)
  Receive Date: 20140826
  Receipt Date: 20141007
  Transmission Date: 20150528
  Serious: Yes (Hospitalization, Other)
  Sender: FDA-Public Use
  Company Number: UY-ABBVIE-14K-168-1274460-00

PATIENT
  Age: 29 Year
  Sex: Female

DRUGS (2)
  1. HUMIRA [Suspect]
     Active Substance: ADALIMUMAB
     Indication: CROHN^S DISEASE
     Route: 058
     Dates: start: 20131101, end: 20140718
  2. HUMIRA [Suspect]
     Active Substance: ADALIMUMAB
     Dates: start: 20140905

REACTIONS (2)
  - Small intestinal stenosis [Recovered/Resolved]
  - Intestinal fibrosis [Recovered/Resolved]

NARRATIVE: CASE EVENT DATE: 20140808
